FAERS Safety Report 8960847 (Version 2)
Quarter: 2013Q1

REPORT INFORMATION
  Report Type: Spontaneous
  Country: US (occurrence: None)
  Receive Date: 20121128
  Receipt Date: 20130123
  Transmission Date: 20140127
  Serious: Yes (Death, Life-Threatening, Hospitalization)
  Sender: FDA-Public Use
  Company Number: 2012US-004468

PATIENT
  Age: 63 Year
  Sex: Male

DRUGS (14)
  1. OMONTYS [Suspect]
     Indication: NEPHROGENIC ANAEMIA
     Route: 042
     Dates: start: 20121022, end: 20121022
  2. ALBUTEROL [Concomitant]
  3. ASPIRIN [Concomitant]
  4. CLONIDINE [Concomitant]
  5. CALCIUM\CHOLECALCIFEROL\COPPER\MAGNESIUM\MANGANESE\ZINC [Concomitant]
  6. HUMULIN [Concomitant]
  7. HYDRALAZINE [Concomitant]
  8. LIPITOR [Concomitant]
  9. LOPRESSOR [Concomitant]
  10. NEPHROVITE (ASCORBIC ACID, BIOTIN, CALCIUM PANTOTENATE, CYANOCOBALAMIN, FOLIC ACID, NICOTINAMIDE, PYRIDOXINE HYDROCHLORIDE, RIBOFLAVIN, THIAMINE HYDROCHLORIDE) [Concomitant]
  11. PLAVIX [Concomitant]
  12. PRILOSEC [Concomitant]
  13. RENVELA [Concomitant]
  14. ULTRAM [Concomitant]

REACTIONS (3)
  - Unresponsive to stimuli [None]
  - Haemoglobin decreased [None]
  - Pneumonia [None]
